FAERS Safety Report 4989069-3 (Version None)
Quarter: 2006Q1

REPORT INFORMATION
  Report Type: 
  Country: None (occurrence: None)
  Receive Date: 20060314
  Receipt Date: 20051111
  Transmission Date: 20060701
  Serious: Yes (Hospitalization)
  Sender: FDA-Public Use
  Company Number: 200514355BCC

PATIENT
  Age: 19 Year
  Sex: Male
  Weight: 63.5036 kg

DRUGS (1)
  1. ALEVE (CAPLET) [Suspect]
     Indication: DEPRESSION
     Dosage: 11000 MG, ONCE, ORAL
     Route: 048
     Dates: start: 20051030

REACTIONS (2)
  - NAUSEA [None]
  - VOMITING [None]
